FAERS Safety Report 4991064-5 (Version None)
Quarter: 2006Q2

REPORT INFORMATION
  Report Type: 
  Country: None (occurrence: None)
  Receive Date: 20060428
  Receipt Date: 20060417
  Transmission Date: 20061013
  Serious: Yes (Death)
  Sender: FDA-Public Use
  Company Number: KADN20060006

PATIENT
  Age: 17 Year
  Sex: Male

DRUGS (3)
  1. MORPHINE [Suspect]
     Dates: start: 20060201, end: 20060201
  2. DIAZEPAM [Suspect]
  3. IBUPROFEN [Concomitant]

REACTIONS (14)
  - ACCIDENTAL DEATH [None]
  - ACCIDENTAL OVERDOSE [None]
  - ADRENAL DISORDER [None]
  - ALCOHOL USE [None]
  - BREATH SOUNDS ABNORMAL [None]
  - CEREBRAL DISORDER [None]
  - DRUG ABUSER [None]
  - DRUG TOXICITY [None]
  - EXCORIATION [None]
  - FIBROSIS [None]
  - HEPATIC CONGESTION [None]
  - LOSS OF CONSCIOUSNESS [None]
  - PULMONARY CONGESTION [None]
  - PULMONARY OEDEMA [None]
